FAERS Safety Report 10197014 (Version 2)
Quarter: 2014Q2

REPORT INFORMATION
  Report Type: Spontaneous
  Country: US (occurrence: US)
  Receive Date: 20140527
  Receipt Date: 20140618
  Transmission Date: 20141212
  Serious: Yes (Death, Other)
  Sender: FDA-Public Use
  Company Number: US-UCBSA-121431

PATIENT
  Age: 62 Year
  Sex: Male

DRUGS (2)
  1. KEPPRA [Suspect]
     Indication: CONVULSION
  2. LIPITOR [Concomitant]

REACTIONS (1)
  - Myocardial infarction [Fatal]
